FAERS Safety Report 12352775 (Version 1)
Quarter: 2016Q2

REPORT INFORMATION
  Report Type: Spontaneous
  Country: US (occurrence: US)
  Receive Date: 20160510
  Receipt Date: 20160510
  Transmission Date: 20160815
  Serious: Yes (Hospitalization, Other)
  Sender: FDA-Public Use
  Company Number: US-MDT-ADR-2016-00289

PATIENT
  Age: 56 Year
  Sex: Female

DRUGS (17)
  1. SODIUM [Suspect]
     Active Substance: SODIUM
  2. KLOR-CON [Suspect]
     Active Substance: POTASSIUM CHLORIDE
  3. XANAX [Suspect]
     Active Substance: ALPRAZOLAM
  4. SIMVASTATIN. [Suspect]
     Active Substance: SIMVASTATIN
  5. NEURONTIN [Suspect]
     Active Substance: GABAPENTIN
  6. BACLOFEN. [Suspect]
     Active Substance: BACLOFEN
  7. LASIX [Suspect]
     Active Substance: FUROSEMIDE
  8. BACLOFEN. [Suspect]
     Active Substance: BACLOFEN
     Route: 037
  9. GILENYA [Suspect]
     Active Substance: FINGOLIMOD HYDROCHLORIDE
  10. FOLIC ACID. [Suspect]
     Active Substance: FOLIC ACID
  11. SPIRONOLACTONE. [Suspect]
     Active Substance: SPIRONOLACTONE
  12. LEVOTHYROXINE. [Suspect]
     Active Substance: LEVOTHYROXINE
  13. NORCO [Suspect]
     Active Substance: ACETAMINOPHEN\HYDROCODONE BITARTRATE
  14. FLEXERIL [Suspect]
     Active Substance: CYCLOBENZAPRINE HYDROCHLORIDE
  15. ZOLOFT [Suspect]
     Active Substance: SERTRALINE HYDROCHLORIDE
  16. PILOCARPINE. [Suspect]
     Active Substance: PILOCARPINE
  17. DILAUDID [Suspect]
     Active Substance: HYDROMORPHONE HYDROCHLORIDE
     Route: 037

REACTIONS (1)
  - No therapeutic response [Unknown]

NARRATIVE: CASE EVENT DATE: 20160210
